FAERS Safety Report 15318020 (Version 2)
Quarter: 2018Q3

REPORT INFORMATION
  Report Type: Report from Study
  Country: BR (occurrence: BR)
  Receive Date: 20180825
  Receipt Date: 20180827
  Transmission Date: 20181010
  Serious: Yes (Death)
  Sender: FDA-Public Use
  Company Number: PHHY2018BR081054

PATIENT
  Age: 74 Year
  Sex: Female

DRUGS (1)
  1. ACLASTA [Suspect]
     Active Substance: ZOLEDRONIC ACID
     Indication: OSTEOPOROSIS
     Dosage: 1 DF, Q12MO
     Route: 042
     Dates: start: 2017

REACTIONS (4)
  - Respiratory failure [Fatal]
  - Condition aggravated [Fatal]
  - Pleural effusion [Fatal]
  - Osteoporosis [Fatal]

NARRATIVE: CASE EVENT DATE: 20180819
